FAERS Safety Report 11544612 (Version 1)
Quarter: 2015Q3

REPORT INFORMATION
  Report Type: Spontaneous
  Country: US (occurrence: None)
  Receive Date: 20150923
  Receipt Date: 20150923
  Transmission Date: 20151125
  Serious: Yes (Life-Threatening, Other)
  Sender: FDA-Public Use
  Company Number: None

PATIENT
  Age: 60 Year
  Sex: Male
  Weight: 96.16 kg

DRUGS (28)
  1. PIOGLITAZONE HYDROCHLORIDE. [Suspect]
     Active Substance: PIOGLITAZONE HYDROCHLORIDE
     Indication: TYPE 2 DIABETES MELLITUS
     Route: 048
  2. DOXASOZIN MESYLATE (CARDURA) [Concomitant]
  3. METHOCARBAMOL. [Concomitant]
     Active Substance: METHOCARBAMOL
  4. SIMVASTATIN  (ZOCOR)? [Concomitant]
  5. METOPROLOL SUCCINATE ER  (TOPROL XL) [Concomitant]
  6. INSULIN PEN? [Concomitant]
  7. ROPINIROLEHCL (REQUIP) [Concomitant]
  8. LANTUS SOLOSTAR [Concomitant]
     Active Substance: INSULIN GLARGINE
  9. TANZEUM [Concomitant]
     Active Substance: ALBIGLUTIDE
  10. GLIPIZIDE (GLUCOTROL) [Concomitant]
  11. PANTOPRAZOLE SODIUM (PROTONIX) [Concomitant]
  12. CLONAZEPAM(KLONOPIN) [Concomitant]
  13. OXYBUTYNIN CL ER [Concomitant]
     Active Substance: OXYBUTYNIN CHLORIDE
  14. CPAP MACHINE/MASK [Concomitant]
  15. CLONAZEPAM  (KLONOPIN) [Concomitant]
  16. PIOGLITAZONE HCL (ACTOS) [Concomitant]
  17. AMLODIPINE BESYLATE-BENAZEP (LOTREL) [Concomitant]
  18. SERTRALINE HCL (ZOLOFT) [Concomitant]
  19. IBUPROFEN. [Concomitant]
     Active Substance: IBUPROFEN
  20. ROPINIROLEHCL (REQUIP) [Concomitant]
  21. SERTRALINE HCL 100 (ZOLOFT) [Concomitant]
  22. REMERON [Concomitant]
     Active Substance: MIRTAZAPINE
  23. METFORMIN HCL  (GLUCOPHAGE)? [Concomitant]
  24. MELATONIN [Concomitant]
     Active Substance: MELATONIN
  25. OMEGA-3 ACID [Concomitant]
  26. ETHYL ESTERS (LOVAZA) [Concomitant]
  27. REMERON [Concomitant]
     Active Substance: MIRTAZAPINE
  28. VITAMIN D3 [Concomitant]
     Active Substance: CHOLECALCIFEROL

REACTIONS (1)
  - Peripheral swelling [None]

NARRATIVE: CASE EVENT DATE: 20150701
